FAERS Safety Report 6309899-5 (Version None)
Quarter: 2009Q3

REPORT INFORMATION
  Report Type: 
  Country: None (occurrence: None)
  Receive Date: 20090814
  Receipt Date: 20090804
  Transmission Date: 20100115
  Serious: Yes (Hospitalization)
  Sender: FDA-Public Use
  Company Number: A0777159A

PATIENT
  Age: 54 Year
  Sex: Male
  Weight: 87.7 kg

DRUGS (5)
  1. AVANDIA [Suspect]
     Indication: TYPE 2 DIABETES MELLITUS
     Route: 048
     Dates: start: 20000607, end: 20060601
  2. AVANDAMET [Suspect]
     Indication: TYPE 2 DIABETES MELLITUS
     Dates: start: 20041101, end: 20070704
  3. AMARYL [Concomitant]
  4. ZOCOR [Concomitant]
  5. FISH OIL [Concomitant]

REACTIONS (9)
  - ACUTE CORONARY SYNDROME [None]
  - CORONARY ARTERY DISEASE [None]
  - EMOTIONAL DISTRESS [None]
  - LABILE HYPERTENSION [None]
  - MYOCARDIAL INFARCTION [None]
  - MYOCARDIAL ISCHAEMIA [None]
  - PAIN [None]
  - QUALITY OF LIFE DECREASED [None]
  - TENDONITIS [None]
